FAERS Safety Report 7815503-7 (Version None)
Quarter: 2011Q4

REPORT INFORMATION
  Report Type: 
  Country: None (occurrence: None)
  Receive Date: 20111014
  Receipt Date: 20110929
  Transmission Date: 20120403
  Serious: Yes (Other)
  Sender: FDA-Public Use
  Company Number: GB-ROCHE-1001072

PATIENT
  Sex: Female
  Weight: 71.3 kg

DRUGS (2)
  1. XELODA [Suspect]
     Route: 048
     Dates: start: 20080527
  2. XELODA [Suspect]
     Indication: COLORECTAL CANCER METASTATIC
     Route: 048

REACTIONS (1)
  - INTESTINAL OBSTRUCTION [None]
